FAERS Safety Report 15526134 (Version 1)
Quarter: 2018Q4

REPORT INFORMATION
  Report Type: Other
  Country: NL (occurrence: NL)
  Receive Date: 20181018
  Receipt Date: 20181018
  Transmission Date: 20190205
  Serious: Yes (Other)
  Sender: FDA-Public Use
  Company Number: NL-APOTEX-2018AP022910

PATIENT
  Age: 37 Year
  Sex: Male

DRUGS (4)
  1. RISEDRONATE [Suspect]
     Active Substance: RISEDRONATE SODIUM
     Indication: OSTEOPOROSIS PROPHYLAXIS
     Dosage: 35 MG, Q.WK.
     Route: 065
     Dates: start: 20180225, end: 20180226
  2. PREDNISOLON                        /00016201/ [Concomitant]
     Active Substance: PREDNISOLONE
     Indication: PRODUCT USED FOR UNKNOWN INDICATION
     Dosage: 10 MG, QD
     Route: 065
  3. AVAMYS [Concomitant]
     Active Substance: FLUTICASONE FUROATE
     Indication: PRODUCT USED FOR UNKNOWN INDICATION
     Dosage: 27.5 ?G, Q.12H
     Route: 065
  4. OMEPRAZOL                          /00661201/ [Concomitant]
     Active Substance: OMEPRAZOLE
     Indication: PRODUCT USED FOR UNKNOWN INDICATION
     Dosage: 20 MG, Q.12H
     Route: 065

REACTIONS (8)
  - Glossodynia [Recovering/Resolving]
  - Dyspnoea [Recovering/Resolving]
  - Anaphylactic reaction [Recovering/Resolving]
  - Cyanosis [Recovering/Resolving]
  - Paraesthesia [Recovering/Resolving]
  - Throat tightness [Recovering/Resolving]
  - Palpitations [Recovering/Resolving]
  - Pain in extremity [Recovering/Resolving]

NARRATIVE: CASE EVENT DATE: 20180225
